FAERS Safety Report 7075228-5 (Version None)
Quarter: 2010Q4

REPORT INFORMATION
  Report Type: 
  Country: None (occurrence: None)
  Receive Date: 20101030
  Receipt Date: 20100706
  Transmission Date: 20110411
  Serious: No
  Sender: FDA-Public Use
  Company Number: US-WYE-H16273310

PATIENT
  Sex: Female

DRUGS (2)
  1. ADVIL PM [Suspect]
     Indication: PAIN
  2. ADVIL PM [Suspect]
     Indication: INSOMNIA

REACTIONS (1)
  - DRUG INEFFECTIVE [None]
